FAERS Safety Report 5369413-8 (Version None)
Quarter: 2007Q2

REPORT INFORMATION
  Report Type: 
  Country: None (occurrence: None)
  Receive Date: 20070625
  Receipt Date: 20070425
  Transmission Date: 20071010
  Serious: No
  Sender: FDA-Public Use
  Company Number: US-ASTRAZENECA-2007UW08181

PATIENT
  Sex: Male

DRUGS (3)
  1. CRESTOR [Suspect]
     Route: 048
  2. FLOMAX [Concomitant]
  3. AVODART [Concomitant]

REACTIONS (2)
  - DYSURIA [None]
  - PROSTATE EXAMINATION ABNORMAL [None]
